FAERS Safety Report 8803026 (Version 2)
Quarter: 2013Q3

REPORT INFORMATION
  Report Type: Spontaneous
  Country: US (occurrence: US)
  Receive Date: 20120924
  Receipt Date: 20130812
  Transmission Date: 20140515
  Serious: Yes (Hospitalization, Other)
  Sender: FDA-Public Use
  Company Number: US-GENZYME-CERZ-1002632

PATIENT
  Age: 61 Year
  Sex: Female
  Weight: 85.5 kg

DRUGS (2)
  1. CEREZYME [Suspect]
     Indication: GAUCHER^S DISEASE
     Dosage: UNK
     Route: 042
     Dates: start: 1996, end: 2000
  2. CEREZYME [Suspect]
     Dosage: 45 U/KG, Q2W
     Route: 042
     Dates: start: 2002

REACTIONS (3)
  - Fall [Unknown]
  - Syncope [Unknown]
  - Face injury [Unknown]
